FAERS Safety Report 14022020 (Version 1)
Quarter: 2017Q3

REPORT INFORMATION
  Report Type: Report from Study
  Country: US (occurrence: US)
  Receive Date: 20170928
  Receipt Date: 20170928
  Transmission Date: 20171128
  Serious: Yes (Other)
  Sender: FDA-Public Use
  Company Number: US-EXELIXIS-XL18417010624

PATIENT
  Age: 35 Year
  Sex: Female

DRUGS (6)
  1. TRASTUZUMAB. [Suspect]
     Active Substance: TRASTUZUMAB
     Indication: BREAST CANCER METASTATIC
     Dosage: UNK
  2. XL184 [Suspect]
     Active Substance: CABOZANTINIB
     Indication: BREAST CANCER METASTATIC
     Dosage: 40 MG, QD
     Route: 048
     Dates: start: 20170614, end: 20170907
  3. DECADRON [Concomitant]
     Active Substance: DEXAMETHASONE
     Route: 049
  4. ZOMETA [Concomitant]
     Active Substance: ZOLEDRONIC ACID
  5. XL184 [Suspect]
     Active Substance: CABOZANTINIB
     Indication: METASTASES TO CENTRAL NERVOUS SYSTEM
  6. DOXYCYCLINE. [Concomitant]
     Active Substance: DOXYCYCLINE

REACTIONS (1)
  - Lipase increased [Not Recovered/Not Resolved]

NARRATIVE: CASE EVENT DATE: 20170908
